FAERS Safety Report 4989913-X (Version None)
Quarter: 2006Q2

REPORT INFORMATION
  Report Type: 
  Country: None (occurrence: None)
  Receive Date: 20060425
  Receipt Date: 20060413
  Transmission Date: 20061013
  Serious: Yes (Life-Threatening)
  Sender: FDA-Public Use
  Company Number: 200610077

PATIENT
  Age: 33 Year
  Sex: Female
  Weight: 65 kg

DRUGS (7)
  1. ALBUMINAR-5 [Suspect]
     Dosage: 500 ML DAILY IV
     Route: 042
  2. HYDROMORPHONE HCL [Concomitant]
  3. CIPRO [Concomitant]
  4. PROGRAF [Concomitant]
  5. BACTRIM [Concomitant]
  6. CELLCEPT [Concomitant]
  7. NYSTATIN [Concomitant]

REACTIONS (4)
  - HYPOTENSION [None]
  - INFUSION RELATED REACTION [None]
  - RESPIRATORY DISTRESS [None]
  - TACHYCARDIA [None]
